FAERS Safety Report 5762932-1 (Version None)
Quarter: 2008Q2

REPORT INFORMATION
  Report Type: 
  Country: None (occurrence: None)
  Receive Date: 20080609
  Receipt Date: 20080602
  Transmission Date: 20081010
  Serious: Yes (Other)
  Sender: FDA-Public Use
  Company Number: BR-ASTRAZENECA-2008UW11184

PATIENT
  Age: 44 Year
  Sex: Female
  Weight: 84 kg

DRUGS (6)
  1. ARIMIDEX [Suspect]
     Indication: BREAST CANCER
     Route: 048
     Dates: start: 20060101, end: 20080201
  2. FASLODEX [Suspect]
     Indication: BREAST CANCER
     Route: 030
     Dates: start: 20080201
  3. GARDENAL [Concomitant]
     Indication: EPILEPSY
     Route: 048
     Dates: start: 19810101, end: 20080101
  4. OXCARBAZEPINE [Concomitant]
     Indication: EPILEPSY
     Route: 048
     Dates: start: 20080101
  5. GEODON [Concomitant]
     Indication: EPILEPSY
     Route: 048
     Dates: start: 20080101
  6. LEXOTAN [Concomitant]
     Indication: EPILEPSY
     Route: 048
     Dates: start: 20080101

REACTIONS (7)
  - CONSTIPATION [None]
  - DIZZINESS [None]
  - FALL [None]
  - METASTASES TO LUNG [None]
  - PAIN IN EXTREMITY [None]
  - VOMITING [None]
  - WEIGHT DECREASED [None]
